FAERS Safety Report 7719323-3 (Version None)
Quarter: 2011Q3

REPORT INFORMATION
  Report Type: 
  Country: None (occurrence: None)
  Receive Date: 20110830
  Receipt Date: 20110823
  Transmission Date: 20111222
  Serious: Yes (Hospitalization, Other)
  Sender: FDA-Public Use
  Company Number: US-BAYER-2011-076689

PATIENT
  Age: 37 Year
  Sex: Female

DRUGS (1)
  1. BEYAZ [Suspect]
     Route: 048

REACTIONS (1)
  - PULMONARY EMBOLISM [None]
